FAERS Safety Report 6528729-X (Version None)
Quarter: 2009Q4

REPORT INFORMATION
  Report Type: 
  Country: None (occurrence: None)
  Receive Date: 20091222
  Receipt Date: 20091103
  Transmission Date: 20100525
  Serious: No
  Sender: FDA-Public Use
  Company Number: ALL1-2009-03477

PATIENT
  Age: 30 Year
  Sex: Female
  Weight: 62.6 kg

DRUGS (1)
  1. VYVANSE [Suspect]
     Indication: ATTENTION DEFICIT/HYPERACTIVITY DISORDER
     Dosage: 40 GM, 1X/DAY:QD, ORAL
     Route: 048
     Dates: start: 20090711, end: 20091016

REACTIONS (1)
  - THYROID FUNCTION TEST ABNORMAL [None]
